FAERS Safety Report 14505800 (Version 1)
Quarter: 2018Q1

REPORT INFORMATION
  Report Type: Spontaneous
  Country: FR (occurrence: FR)
  Receive Date: 20180208
  Receipt Date: 20180208
  Transmission Date: 20180509
  Serious: Yes (Life-Threatening, Hospitalization, Disabling)
  Sender: FDA-Public Use
  Company Number: FR-PFIZER INC-2018051346

PATIENT
  Age: 15 Year
  Sex: Female
  Weight: 73 kg

DRUGS (1)
  1. ADVIL [Suspect]
     Active Substance: IBUPROFEN
     Indication: EAR INFECTION
     Dosage: 1 DF, AS NEEDED
     Route: 048
     Dates: start: 20180102, end: 20180106

REACTIONS (8)
  - Condition aggravated [Recovered/Resolved]
  - Brain empyema [Recovered/Resolved]
  - Hemiplegia [Not Recovered/Not Resolved]
  - Acute kidney injury [Recovered/Resolved]
  - Aphasia [Not Recovered/Not Resolved]
  - Status epilepticus [Recovered/Resolved]
  - Intracranial pressure increased [Recovered/Resolved]
  - Intentional product misuse [Unknown]

NARRATIVE: CASE EVENT DATE: 20180102
